FAERS Safety Report 15151892 (Version 1)
Quarter: 2018Q3

REPORT INFORMATION
  Report Type: Spontaneous
  Country: IT (occurrence: IT)
  Receive Date: 20180717
  Receipt Date: 20180717
  Transmission Date: 20181010
  Serious: Yes (Hospitalization, Other)
  Sender: FDA-Public Use
  Company Number: IT-MERCK KGAA-2052192

PATIENT
  Age: 72 Year
  Sex: Female

DRUGS (18)
  1. RIVOTRIL [Suspect]
     Active Substance: CLONAZEPAM
  2. OLANZAPINE. [Suspect]
     Active Substance: OLANZAPINE
     Dates: start: 201501, end: 201503
  3. NOVOTHYROX [Suspect]
     Active Substance: LEVOTHYROXINE SODIUM
     Indication: PRODUCT USED FOR UNKNOWN INDICATION
  4. LORAZEPAM. [Suspect]
     Active Substance: LORAZEPAM
  5. OLANZAPINE. [Suspect]
     Active Substance: OLANZAPINE
     Dates: start: 201503
  6. CARDIOASPIRIN [Suspect]
     Active Substance: ASPIRIN
  7. RIVOTRIL [Suspect]
     Active Substance: CLONAZEPAM
  8. TRITTICO [Suspect]
     Active Substance: TRAZODONE HYDROCHLORIDE
     Dates: start: 201501, end: 201507
  9. BRILIQUE [Suspect]
     Active Substance: TICAGRELOR
     Route: 048
  10. ATORVASTATIN CALCIUM. [Suspect]
     Active Substance: ATORVASTATIN CALCIUM
  11. PANTOPRAZOLE [Suspect]
     Active Substance: PANTOPRAZOLE
     Route: 048
  12. TRIAZOLAM. [Suspect]
     Active Substance: TRIAZOLAM
  13. RIVOTRIL [Suspect]
     Active Substance: CLONAZEPAM
  14. QUETIAPINE. [Suspect]
     Active Substance: QUETIAPINE
     Route: 048
  15. TRITTICO [Suspect]
     Active Substance: TRAZODONE HYDROCHLORIDE
  16. LORAZEPAM. [Suspect]
     Active Substance: LORAZEPAM
  17. TRITTICO [Suspect]
     Active Substance: TRAZODONE HYDROCHLORIDE
  18. LOPRESSOR [Suspect]
     Active Substance: METOPROLOL TARTRATE
     Route: 048

REACTIONS (12)
  - Fatigue [Unknown]
  - Discomfort [Unknown]
  - Dyspnoea [Unknown]
  - Feeling cold [Unknown]
  - Electrocardiogram QT prolonged [Unknown]
  - Malaise [Unknown]
  - Epistaxis [Unknown]
  - Hypothyroidism [Unknown]
  - Electrocardiogram T wave inversion [Unknown]
  - Myocardial ischaemia [Unknown]
  - Suicide attempt [Unknown]
  - Weight increased [Unknown]

NARRATIVE: CASE EVENT DATE: 201507
